FAERS Safety Report 6079059-4 (Version None)
Quarter: 2009Q1

REPORT INFORMATION
  Report Type: 
  Country: None (occurrence: None)
  Receive Date: 20090216
  Receipt Date: 20090204
  Transmission Date: 20090719
  Serious: Yes (Death)
  Sender: FDA-Public Use
  Company Number: FR-ROCHE-612840

PATIENT
  Sex: Male

DRUGS (8)
  1. CAPECITABINE [Suspect]
     Indication: COLORECTAL CANCER
     Route: 048
     Dates: start: 20080118
  2. OXALIPLATIN [Suspect]
     Indication: COLORECTAL CANCER
     Route: 065
     Dates: start: 20080118
  3. DIGOXIN [Concomitant]
     Route: 065
  4. ZESTRIL [Concomitant]
  5. LASILIX [Concomitant]
  6. ARIXTRA [Concomitant]
  7. PREVISCAN [Concomitant]
  8. DIFFU-K [Concomitant]

REACTIONS (1)
  - RESPIRATORY ARREST [None]
